FAERS Safety Report 20461122 (Version 2)
Quarter: 2022Q1

REPORT INFORMATION
  Report Type: Report from Study
  Country: US (occurrence: US)
  Receive Date: 20220211
  Receipt Date: 20220214
  Transmission Date: 20220423
  Serious: No
  Sender: FDA-Public Use
  Company Number: US-HRARD-2021000025

PATIENT
  Age: 49 Year
  Sex: Female

DRUGS (5)
  1. LYSODREN [Suspect]
     Active Substance: MITOTANE
     Dosage: 2000 MG BID, THEN THE PATIENT WAS OFF FOR A WHILE
     Route: 048
     Dates: start: 20201231
  2. LYSODREN [Suspect]
     Active Substance: MITOTANE
     Route: 048
  3. LYSODREN [Suspect]
     Active Substance: MITOTANE
     Dosage: REPORTED AS TWO TABLETS OF 500 MG TWO TIMES A DAY
     Route: 048
     Dates: end: 202110
  4. NAPROXEN SODIUM\PSEUDOEPHEDRINE HYDROCHLORIDE [Concomitant]
     Active Substance: NAPROXEN SODIUM\PSEUDOEPHEDRINE HYDROCHLORIDE
  5. RIZATRIPTAN [Concomitant]
     Active Substance: RIZATRIPTAN

REACTIONS (2)
  - Migraine [Unknown]
  - Adverse event [Unknown]

NARRATIVE: CASE EVENT DATE: 20210101
